FAERS Safety Report 8240874-X (Version None)
Quarter: 2012Q1

REPORT INFORMATION
  Report Type: 
  Country: None (occurrence: None)
  Receive Date: 20120328
  Receipt Date: 20120320
  Transmission Date: 20120608
  Serious: Yes (Hospitalization, Other)
  Sender: FDA-Public Use
  Company Number: US-BAYER-2011-095021

PATIENT
  Age: 32 Year
  Sex: Female
  Weight: 77.098 kg

DRUGS (3)
  1. NAPROXEN (ALEVE) [Concomitant]
     Indication: ANALGESIC THERAPY
     Dosage: PRN
     Dates: start: 20090901, end: 20100101
  2. YASMIN [Suspect]
  3. YAZ [Suspect]
     Dosage: UNK
     Dates: start: 20090421, end: 20100101

REACTIONS (6)
  - GALLBLADDER DISORDER [None]
  - PAIN [None]
  - CHOLECYSTITIS CHRONIC [None]
  - ANHEDONIA [None]
  - ANXIETY [None]
  - GALLBLADDER PAIN [None]
